FAERS Safety Report 14111340 (Version 1)
Quarter: 2017Q4

REPORT INFORMATION
  Report Type: Spontaneous
  Country: RU (occurrence: RU)
  Receive Date: 20171020
  Receipt Date: 20171020
  Transmission Date: 20180321
  Serious: Yes (Hospitalization)
  Sender: FDA-Public Use
  Company Number: RU-ASTRAZENECA-2017SF05727

PATIENT
  Age: 70 Year
  Sex: Female
  Weight: 93 kg

DRUGS (8)
  1. EDARBI [Concomitant]
     Active Substance: AZILSARTAN KAMEDOXOMIL
  2. LANTUS [Concomitant]
     Active Substance: INSULIN GLARGINE
  3. INSULIN [Concomitant]
     Active Substance: INSULIN NOS
  4. CONCOR [Concomitant]
     Active Substance: BISOPROLOL FUMARATE
  5. FORXIGA [Suspect]
     Active Substance: DAPAGLIFLOZIN
     Indication: TYPE 2 DIABETES MELLITUS
     Route: 048
     Dates: start: 201702
  6. CARDIOMAGNYL [Concomitant]
     Active Substance: ASPIRIN\MAGNESIUM HYDROXIDE
  7. INGAVIRIN [Concomitant]
     Active Substance: INGAVIRIN
  8. ATORVASTATIN [Concomitant]
     Active Substance: ATORVASTATIN

REACTIONS (2)
  - Hyperglycaemia [Recovered/Resolved]
  - Upper respiratory tract infection [Not Recovered/Not Resolved]

NARRATIVE: CASE EVENT DATE: 20170909
